FAERS Safety Report 17103014 (Version 1)
Quarter: 2019Q4

REPORT INFORMATION
  Report Type: Spontaneous
  Country: US (occurrence: US)
  Receive Date: 20191202
  Receipt Date: 20191202
  Transmission Date: 20200122
  Serious: Yes (Disabling)
  Sender: FDA-Public Use
  Company Number: None

PATIENT
  Age: 32 Year
  Sex: Female
  Weight: 92.25 kg

DRUGS (7)
  1. LARIN FE 1.5/30 [Suspect]
     Active Substance: ETHINYL ESTRADIOL\NORETHINDRONE ACETATE
     Indication: OVARIAN CYST
     Dosage: ?          OTHER STRENGTH:MG/UG;QUANTITY:1 TABLET(S);?
     Route: 048
  2. ADVIL [Concomitant]
     Active Substance: IBUPROFEN
  3. ALEVE [Concomitant]
     Active Substance: NAPROXEN SODIUM
  4. PROZAC [Concomitant]
     Active Substance: FLUOXETINE HYDROCHLORIDE
  5. BENADRYL [Concomitant]
     Active Substance: DIPHENHYDRAMINE HYDROCHLORIDE
  6. VITAMINS [Concomitant]
     Active Substance: VITAMINS
  7. SYNTHROID [Concomitant]
     Active Substance: LEVOTHYROXINE SODIUM

REACTIONS (2)
  - Dysphagia [None]
  - Urticaria [None]

NARRATIVE: CASE EVENT DATE: 20191129
